FAERS Safety Report 25667743 (Version 1)
Quarter: 2025Q3

REPORT INFORMATION
  Report Type: Spontaneous
  Country: US (occurrence: US)
  Receive Date: 20250812
  Receipt Date: 20250812
  Transmission Date: 20251020
  Serious: Yes (Hospitalization, Other)
  Sender: GALDERMA
  Company Number: US-GALDERMA-US2025014334

PATIENT

DRUGS (1)
  1. NEMLUVIO [Suspect]
     Active Substance: NEMOLIZUMAB-ILTO
     Indication: Neurodermatitis
     Route: 058
     Dates: start: 202501, end: 202501

REACTIONS (10)
  - Fall [Unknown]
  - Cerebral haemorrhage [Unknown]
  - Spinal fracture [Unknown]
  - Periorbital injury [Unknown]
  - Wrist fracture [Unknown]
  - Implant site infection [Unknown]
  - Blood sodium decreased [Unknown]
  - Neurodermatitis [Not Recovered/Not Resolved]
  - Pruritus [Unknown]
  - Rash [Unknown]

NARRATIVE: CASE EVENT DATE: 20250101
